FAERS Safety Report 7668165-6 (Version None)
Quarter: 2011Q3

REPORT INFORMATION
  Report Type: 
  Country: None (occurrence: None)
  Receive Date: 20110808
  Receipt Date: 20110804
  Transmission Date: 20111222
  Serious: Yes (Disabling, Other)
  Sender: FDA-Public Use
  Company Number: US-PFIZER INC-2011179007

PATIENT
  Sex: Female
  Weight: 82.54 kg

DRUGS (6)
  1. VALIUM [Concomitant]
     Indication: PANIC ATTACK
     Dosage: 10 MG, DAILY
  2. SIMVASTATIN [Concomitant]
     Indication: BLOOD CHOLESTEROL INCREASED
     Dosage: 40 MG, DAILY
  3. PERCOCET [Concomitant]
     Indication: ARTHRALGIA
     Dosage: 5 MG, 4X/DAY
  4. LEXAPRO [Concomitant]
     Indication: MANIA
     Dosage: 20 MG, DAILY
  5. CHANTIX [Suspect]
     Indication: SMOKING CESSATION THERAPY
     Dosage: 0.5 MG, DAILY
     Route: 048
     Dates: start: 20110802
  6. LEXAPRO [Concomitant]
     Indication: DEPRESSION

REACTIONS (2)
  - PHARYNGEAL OEDEMA [None]
  - JOINT STIFFNESS [None]
